FAERS Safety Report 9792086 (Version 7)
Quarter: 2014Q4

REPORT INFORMATION
  Report Type: Spontaneous
  Country: US (occurrence: US)
  Receive Date: 20140102
  Receipt Date: 20141202
  Transmission Date: 20150529
  Serious: Yes (Hospitalization, Other)
  Sender: FDA-Public Use
  Company Number: US-009507513-1312USA011683

PATIENT
  Sex: Female
  Weight: 61.68 kg

DRUGS (5)
  1. FOSAMAX PLUS D [Suspect]
     Active Substance: ALENDRONATE SODIUM\CHOLECALCIFEROL
     Indication: OSTEOPOROSIS
     Dosage: 70MG/2800IU, UNK
     Route: 048
     Dates: start: 20060518
  2. FOSAMAX [Suspect]
     Active Substance: ALENDRONATE SODIUM
     Indication: OSTEOPOROSIS
     Dosage: 10 MG, QD
     Route: 048
     Dates: start: 19990901
  3. FOSAMAX [Suspect]
     Active Substance: ALENDRONATE SODIUM
     Dosage: 70 MG, QW
     Route: 048
     Dates: start: 20020214, end: 2007
  4. ALENDRONATE SODIUM. [Suspect]
     Active Substance: ALENDRONATE SODIUM
     Indication: OSTEOPOROSIS
     Dosage: 70 MG, UNK
     Dates: start: 20080730, end: 20111121
  5. FOSAMAX PLUS D [Suspect]
     Active Substance: ALENDRONATE SODIUM\CHOLECALCIFEROL
     Dosage: 70MG/5600IU, UNK
     Route: 048
     Dates: start: 20070815, end: 20080423

REACTIONS (22)
  - Parathyroidectomy [Unknown]
  - Nasal ulcer [Unknown]
  - Plantar fasciitis [Unknown]
  - Low turnover osteopathy [Unknown]
  - Osteoarthritis [Unknown]
  - Tonsillectomy [Unknown]
  - Rash [Recovering/Resolving]
  - Femur fracture [Unknown]
  - Femur fracture [Unknown]
  - Back pain [Unknown]
  - Intramedullary rod insertion [Unknown]
  - Intramedullary rod insertion [Unknown]
  - Left ventricular dysfunction [Unknown]
  - Pulmonary congestion [Unknown]
  - Hypertension [Unknown]
  - Femur fracture [Unknown]
  - Cardiomegaly [Unknown]
  - Meniscus injury [Unknown]
  - Oophorectomy [Unknown]
  - Nephrolithiasis [Unknown]
  - Glaucoma [Unknown]
  - Osteopenia [Unknown]

NARRATIVE: CASE EVENT DATE: 20070307
